FAERS Safety Report 25287021 (Version 1)
Quarter: 2025Q2

REPORT INFORMATION
  Report Type: Spontaneous
  Country: US (occurrence: US)
  Receive Date: 20250509
  Receipt Date: 20250509
  Transmission Date: 20250716
  Serious: No
  Sender: ALLEGIS PHARMACEUTICALS
  Company Number: US-ALLEGIS PHARMACEUTICALS, LLC-LGP202501-000003

PATIENT

DRUGS (1)
  1. IMURAN [Suspect]
     Active Substance: AZATHIOPRINE
     Route: 065

REACTIONS (1)
  - Drug ineffective [Unknown]
